FAERS Safety Report 7653568-6 (Version None)
Quarter: 2011Q3

REPORT INFORMATION
  Report Type: 
  Country: None (occurrence: None)
  Receive Date: 20110803
  Receipt Date: 20110729
  Transmission Date: 20111222
  Serious: Yes (Hospitalization)
  Sender: FDA-Public Use
  Company Number: PHHY2011GB68149

PATIENT
  Age: 58 Year
  Sex: Female

DRUGS (4)
  1. METOCLOPRAMIDE [Concomitant]
     Dosage: 10 MG, TID
     Route: 048
  2. ACETAMINOPHEN [Concomitant]
     Dosage: 1 G, QID
     Route: 048
  3. CITALOPRAM HYDROBROMIDE [Suspect]
     Indication: DEPRESSION
     Dosage: 60 MG, QD
     Route: 048
  4. OMEPRAZOLE [Concomitant]
     Dosage: 40 MG, BID
     Route: 048

REACTIONS (2)
  - DUODENAL PERFORATION [None]
  - DUODENAL STENOSIS [None]
